FAERS Safety Report 24450018 (Version 2)
Quarter: 2024Q4

REPORT INFORMATION
  Report Type: Spontaneous
  Country: US (occurrence: US)
  Receive Date: 20241017
  Receipt Date: 20241203
  Transmission Date: 20250115
  Serious: No
  Sender: GILEAD
  Company Number: US-GILEAD-2024-0691134

PATIENT

DRUGS (1)
  1. EPCLUSA [Suspect]
     Active Substance: SOFOSBUVIR\VELPATASVIR
     Indication: Hepatitis C
     Dosage: UNK
     Route: 065

REACTIONS (6)
  - Fatigue [Not Recovered/Not Resolved]
  - Abdominal pain upper [Not Recovered/Not Resolved]
  - Pain [Unknown]
  - Malaise [Unknown]
  - Palpitations [Unknown]
  - Insomnia [Unknown]
